FAERS Safety Report 22038252 (Version 2)
Quarter: 2023Q1

REPORT INFORMATION
  Report Type: Spontaneous
  Country: US (occurrence: US)
  Receive Date: 20230227
  Receipt Date: 20230308
  Transmission Date: 20230417
  Serious: Yes (Other)
  Sender: FDA-Public Use
  Company Number: US-BRISTOL-MYERS SQUIBB COMPANY-2023-027639

PATIENT
  Age: 68 Year
  Sex: Female

DRUGS (1)
  1. REVLIMID [Suspect]
     Active Substance: LENALIDOMIDE
     Indication: Monoclonal gammopathy
     Route: 048
     Dates: start: 20230207

REACTIONS (15)
  - Rash [Not Recovered/Not Resolved]
  - Diverticulitis [Unknown]
  - Pain [Unknown]
  - Diarrhoea [Unknown]
  - Hyperhidrosis [Unknown]
  - Paraesthesia [Unknown]
  - Abdominal distension [Unknown]
  - Gastrointestinal inflammation [Unknown]
  - Fatigue [Unknown]
  - Dyspepsia [Not Recovered/Not Resolved]
  - Off label use [Unknown]
  - Infection [Unknown]
  - Constipation [Unknown]
  - Muscle spasms [Unknown]
  - Nasopharyngitis [Unknown]

NARRATIVE: CASE EVENT DATE: 20230201
